FAERS Safety Report 14331621 (Version 17)
Quarter: 2020Q1

REPORT INFORMATION
  Report Type: Spontaneous
  Country: CA (occurrence: CA)
  Receive Date: 20171228
  Receipt Date: 20200217
  Transmission Date: 20200409
  Serious: Yes (Hospitalization, Other)
  Sender: FDA-Public Use
  Company Number: CA-CELLTRION INC.-2017CA009300

PATIENT

DRUGS (29)
  1. INFLECTRA [Suspect]
     Active Substance: INFLIXIMAB-DYYB
     Dosage: 500 MG, EVERY 0, 2, 6, THEN EVERY 8 WEEKS
     Route: 042
     Dates: start: 20180412
  2. INFLECTRA [Suspect]
     Active Substance: INFLIXIMAB-DYYB
     Dosage: 500 MG, EVERY 8 WEEKS
     Route: 042
     Dates: start: 20190516
  3. VIT D [Concomitant]
     Active Substance: VITAMIN D NOS
     Dosage: 2000 IU, 1X/DAY
     Route: 048
  4. INFLECTRA [Suspect]
     Active Substance: INFLIXIMAB-DYYB
     Dosage: 500 MG, EVERY 0, 2, 6, THEN EVERY 8 WEEKS
     Route: 042
     Dates: start: 20180607
  5. AZATHIOPRINE. [Concomitant]
     Active Substance: AZATHIOPRINE
     Indication: COLITIS ULCERATIVE
     Dosage: 200 MG (4 TABLETS), 1X/DAY
     Route: 048
     Dates: start: 2007
  6. VITAMIN B12 [Concomitant]
     Active Substance: CYANOCOBALAMIN
     Dosage: 1200 UG, 1X/DAY
     Route: 048
  7. VITAMIN B12 [Concomitant]
     Active Substance: CYANOCOBALAMIN
     Dosage: UNK DOSE, DAILY
     Route: 048
  8. ASACOL [Concomitant]
     Active Substance: MESALAMINE
     Dosage: 2400 MG, 1X/DAY
     Route: 048
  9. INFLECTRA [Suspect]
     Active Substance: INFLIXIMAB-DYYB
     Dosage: 500 MG, EVERY 0, 2, 6, THEN EVERY 8 WEEKS
     Route: 042
     Dates: start: 20180807
  10. INFLECTRA [Suspect]
     Active Substance: INFLIXIMAB-DYYB
     Dosage: 500 MG, Q 0, 2, 6 WEEKS THEN EVERY 8 WEEKS
     Route: 042
     Dates: start: 20190719
  11. AMLODIPINE BESILATE [Concomitant]
     Active Substance: AMLODIPINE BESYLATE
     Indication: HYPERTENSION
     Dosage: 5 MG, 1X/DAY
     Route: 048
  12. AMLODIPINE BESILATE [Concomitant]
     Active Substance: AMLODIPINE BESYLATE
     Dosage: 10 MG, 1X/DAY
     Route: 048
     Dates: start: 20170628, end: 2017
  13. INFLECTRA [Suspect]
     Active Substance: INFLIXIMAB-DYYB
     Dosage: 500 MG, Q 0, 2, 6 WEEKS THEN EVERY 8 WEEKS
     Route: 042
     Dates: start: 20191108
  14. AMLODIPINE BESILATE [Concomitant]
     Active Substance: AMLODIPINE BESYLATE
     Dosage: 5 MG, 1X/DAY
     Route: 048
     Dates: start: 2017
  15. ASACOL [Concomitant]
     Active Substance: MESALAMINE
     Dosage: 800MG 6 TAB QD
     Route: 048
  16. INFLECTRA [Suspect]
     Active Substance: INFLIXIMAB-DYYB
     Dosage: 500 MG, EVERY 8 WEEKS
     Route: 042
     Dates: start: 20190318
  17. INFLECTRA [Suspect]
     Active Substance: INFLIXIMAB-DYYB
     Dosage: 500 MG, Q 0, 2, 6 WEEKS THEN EVERY 8 WEEKS
     Route: 042
     Dates: start: 20190913
  18. AZATHIOPRINE. [Concomitant]
     Active Substance: AZATHIOPRINE
     Dosage: 50 MG,(4 TAB) DAILY
     Route: 048
     Dates: start: 2007
  19. CHLORTHALIDONE. [Concomitant]
     Active Substance: CHLORTHALIDONE
     Indication: HYPERTENSION
     Dosage: 25 MG, 1X/DAY
     Route: 048
  20. INFLECTRA [Suspect]
     Active Substance: INFLIXIMAB-DYYB
     Dosage: 500 MG, EVERY 8 WEEKS
     Route: 042
     Dates: start: 20181002
  21. INFLECTRA [Suspect]
     Active Substance: INFLIXIMAB-DYYB
     Dosage: 500 MG, EVERY 8 WEEKS
     Route: 042
     Dates: start: 20181127
  22. INFLECTRA [Suspect]
     Active Substance: INFLIXIMAB-DYYB
     Dosage: 500 MG, Q 0, 2, 6 WEEKS THEN EVERY 8 WEEKS
     Route: 042
     Dates: start: 20200106
  23. ASACOL [Concomitant]
     Active Substance: MESALAMINE
     Dosage: 4800 MG (6 TABLETS), 1X/DAY
     Route: 048
     Dates: start: 20171215
  24. VIT D [Concomitant]
     Active Substance: VITAMIN D NOS
     Dosage: UNK DOSE, DAILY
     Route: 065
  25. INFLECTRA [Suspect]
     Active Substance: INFLIXIMAB-DYYB
     Indication: COLITIS ULCERATIVE
     Dosage: 500 MG, EVERY 0, 2, 6, THEN EVERY 8 WEEKS
     Route: 042
     Dates: start: 20170707
  26. INFLECTRA [Suspect]
     Active Substance: INFLIXIMAB-DYYB
     Dosage: 500 MG, EVERY 0, 2, 6, THEN EVERY 8 WEEKS
     Route: 042
     Dates: start: 20180212
  27. INFLECTRA [Suspect]
     Active Substance: INFLIXIMAB-DYYB
     Dosage: 500 MG, Q 0, 2, 6 WEEKS THEN EVERY 8 WEEKS
     Route: 042
     Dates: start: 20190913
  28. ASACOL [Concomitant]
     Active Substance: MESALAMINE
     Indication: COLITIS ULCERATIVE
     Dosage: 4800 MG (6 TABLETS), 1X/DAY
     Route: 048
     Dates: start: 2007
  29. RAMIPRIL. [Concomitant]
     Active Substance: RAMIPRIL
     Dosage: 5 MG, 1X/DAY
     Route: 048

REACTIONS (8)
  - Stress [Unknown]
  - Product use issue [Unknown]
  - Blood pressure increased [Not Recovered/Not Resolved]
  - Cardiac disorder [Unknown]
  - Off label use [Unknown]
  - Intentional product use issue [Unknown]
  - Postoperative wound infection [Recovered/Resolved]
  - Blood pressure fluctuation [Not Recovered/Not Resolved]

NARRATIVE: CASE EVENT DATE: 20170707
